FAERS Safety Report 24613515 (Version 1)
Quarter: 2024Q4

REPORT INFORMATION
  Report Type: Spontaneous
  Country: GB (occurrence: GB)
  Receive Date: 20241113
  Receipt Date: 20241113
  Transmission Date: 20250115
  Serious: Yes (Hospitalization, Other)
  Sender: GLAND PHARMA LTD
  Company Number: GB-GLANDPHARMA-GB-2024GLNLIT00971

PATIENT
  Age: 7 Decade
  Sex: Female

DRUGS (1)
  1. HEPARIN SODIUM [Suspect]
     Active Substance: HEPARIN SODIUM
     Indication: Pulmonary embolism
     Route: 058

REACTIONS (3)
  - Respiratory arrest [Recovered/Resolved]
  - Heparin-induced thrombocytopenia [Recovered/Resolved]
  - Anaphylactoid reaction [Recovered/Resolved]
